FAERS Safety Report 10347572 (Version 2)
Quarter: 2014Q4

REPORT INFORMATION
  Report Type: Spontaneous
  Country: DE (occurrence: DE)
  Receive Date: 20140729
  Receipt Date: 20141203
  Transmission Date: 20150528
  Serious: Yes (Life-Threatening, Hospitalization, Disabling, Other)
  Sender: FDA-Public Use
  Company Number: PHHY2014DE092036

PATIENT
  Age: 74 Year
  Sex: Male
  Weight: 73 kg

DRUGS (2)
  1. DOBUTAMINE [Suspect]
     Active Substance: DOBUTAMINE\DOBUTAMINE HYDROCHLORIDE
     Indication: PRODUCT USED FOR UNKNOWN INDICATION
     Dosage: 30 UG/KG/ MIN
  2. NILOTINIB [Suspect]
     Active Substance: NILOTINIB
     Indication: CHRONIC MYELOID LEUKAEMIA
     Dosage: 300 MG, EVERY 02 DAYS
     Route: 048
     Dates: start: 201309, end: 20140708

REACTIONS (25)
  - Nausea [Unknown]
  - General physical health deterioration [Unknown]
  - Heart sounds abnormal [Unknown]
  - Atrial flutter [Unknown]
  - Coronary artery disease [Unknown]
  - Goitre [Unknown]
  - Electrocardiogram abnormal [Unknown]
  - Dilatation atrial [Unknown]
  - Chronic gastritis [Unknown]
  - Angina pectoris [Unknown]
  - Akinesia [Unknown]
  - Chest discomfort [Unknown]
  - Aortic valve sclerosis [Unknown]
  - Carotid artery stenosis [Unknown]
  - Chronic myeloid leukaemia (in remission) [Unknown]
  - Local swelling [Unknown]
  - Heart rate increased [Unknown]
  - Percussion test abnormal [Unknown]
  - Acute myocardial infarction [Unknown]
  - Spinal osteoarthritis [Unknown]
  - Glaucoma [Unknown]
  - Hypokinesia [Unknown]
  - Abdominal wall disorder [Unknown]
  - Breath sounds abnormal [Unknown]
  - Blood creatine phosphokinase increased [Unknown]

NARRATIVE: CASE EVENT DATE: 201312
